FAERS Safety Report 9954344 (Version 1)
Quarter: 2014Q1

REPORT INFORMATION
  Report Type: Spontaneous
  Country: US (occurrence: US)
  Receive Date: 20140304
  Receipt Date: 20140304
  Transmission Date: 20141002
  Serious: No
  Sender: FDA-Public Use
  Company Number: US-AMGEN-USASP2014000648

PATIENT
  Age: 38 Year
  Sex: Female
  Weight: 99.77 kg

DRUGS (5)
  1. ENBREL [Suspect]
     Indication: PRODUCT USED FOR UNKNOWN INDICATION
     Dosage: 50 MG, QWK
     Route: 058
  2. TRAMADOL HCL [Concomitant]
     Dosage: 50 MG, UNK
     Route: 048
  3. SPIRONOLACTON [Concomitant]
     Dosage: 100 MG, UNK
     Route: 048
  4. AMITRIPTYLIN [Concomitant]
     Dosage: 50 MG, UNK
     Route: 048
  5. VITAMIN D                          /00107901/ [Concomitant]
     Dosage: 2000 UNIT, UNK
     Route: 048

REACTIONS (1)
  - Drug effect decreased [Unknown]
